FAERS Safety Report 13628271 (Version 4)
Quarter: 2017Q3

REPORT INFORMATION
  Report Type: Spontaneous
  Country: SK (occurrence: SK)
  Receive Date: 20170607
  Receipt Date: 20170926
  Transmission Date: 20171127
  Serious: Yes (Hospitalization, Other)
  Sender: FDA-Public Use
  Company Number: SK-JNJFOC-20170525327

PATIENT
  Age: 72 Year
  Sex: Female
  Weight: 104 kg

DRUGS (14)
  1. MILURIT [Concomitant]
     Active Substance: ALLOPURINOL
     Route: 065
  2. NOLPAZA [Concomitant]
     Active Substance: PANTOPRAZOLE SODIUM
     Indication: DYSPEPSIA
     Route: 065
  3. TRIMETAZIDIN [Concomitant]
     Indication: MYOCARDIAL ISCHAEMIA
     Route: 065
  4. IMBRUVICA [Suspect]
     Active Substance: IBRUTINIB
     Indication: CHRONIC LYMPHOCYTIC LEUKAEMIA
     Route: 048
     Dates: start: 20170628
  5. FURON [Concomitant]
     Active Substance: FUROSEMIDE
     Dosage: TUESDAY TO FRIDAY
     Route: 065
  6. LOKREN [Concomitant]
     Active Substance: BETAXOLOL HYDROCHLORIDE
     Dosage: 1/2-0-1/2
     Route: 065
  7. LAGOSA [Concomitant]
     Indication: LIVER DISORDER
     Route: 065
  8. BISOCARD [Concomitant]
     Active Substance: BISOPROLOL
     Indication: HYPERTENSION
  9. IMBRUVICA [Suspect]
     Active Substance: IBRUTINIB
     Indication: CHRONIC LYMPHOCYTIC LEUKAEMIA
     Route: 048
     Dates: start: 20150722, end: 201702
  10. IMBRUVICA [Suspect]
     Active Substance: IBRUTINIB
     Indication: CHRONIC LYMPHOCYTIC LEUKAEMIA
     Route: 048
     Dates: start: 2017, end: 20170531
  11. ESCITALOPRAM [Concomitant]
     Active Substance: ESCITALOPRAM OXALATE
     Route: 065
  12. CORVATON [Concomitant]
     Active Substance: MOLSIDOMINE
     Dosage: 0-0-1/2
     Route: 065
  13. MIRAKLIDE [Concomitant]
     Indication: DEPRESSION
  14. BISOCARD [Concomitant]
     Active Substance: BISOPROLOL
     Indication: MYOCARDIAL ISCHAEMIA

REACTIONS (2)
  - Atrial fibrillation [Recovered/Resolved]
  - Cardiac failure [Recovered/Resolved]

NARRATIVE: CASE EVENT DATE: 20170324
